FAERS Safety Report 16528516 (Version 2)
Quarter: 2019Q3

REPORT INFORMATION
  Report Type: Spontaneous
  Country: US (occurrence: US)
  Receive Date: 20190703
  Receipt Date: 20190713
  Transmission Date: 20191004
  Serious: Yes (Other)
  Sender: FDA-Public Use
  Company Number: US-AMGEN-USASP2019101727

PATIENT
  Age: 76 Year
  Sex: Female

DRUGS (6)
  1. PROLIA [Suspect]
     Active Substance: DENOSUMAB
     Indication: OSTEOPOROSIS POSTMENOPAUSAL
     Dosage: 60 MILLIGRAM
     Route: 065
     Dates: start: 2016
  2. DETROL LA [Concomitant]
     Active Substance: TOLTERODINE TARTRATE
     Indication: PROPHYLAXIS
  3. VITAMIN D [ERGOCALCIFEROL] [Concomitant]
     Active Substance: ERGOCALCIFEROL
  4. URIBEL [Concomitant]
     Active Substance: HYOSCYAMINE SULFATE\METHENAMINE\METHYLENE BLUE\PHENYL SALICYLATE\SODIUM PHOSPHATE, MONOBASIC, MONOHYDRATE
     Indication: DYSURIA
  5. CALCIUM [Concomitant]
     Active Substance: CALCIUM
     Dosage: 1200 MILLIGRAM, QD
  6. LEVAQUIN [Concomitant]
     Active Substance: LEVOFLOXACIN
     Indication: CYSTITIS INTERSTITIAL

REACTIONS (14)
  - Suture rupture [Unknown]
  - Fall [Unknown]
  - Body height decreased [Unknown]
  - Tooth abscess [Unknown]
  - Vulvovaginal inflammation [Unknown]
  - Rash [Unknown]
  - Depression [Unknown]
  - Device dislocation [Unknown]
  - Fracture [Unknown]
  - Fractured coccyx [Unknown]
  - Muscle spasms [Unknown]
  - Post procedural haemorrhage [Unknown]
  - Eye haemorrhage [Unknown]
  - Concussion [Unknown]
